FAERS Safety Report 8202548-0 (Version None)
Quarter: 2012Q1

REPORT INFORMATION
  Report Type: 
  Country: None (occurrence: None)
  Receive Date: 20120312
  Receipt Date: 20120302
  Transmission Date: 20120608
  Serious: Yes (Other)
  Sender: FDA-Public Use
  Company Number: PHHY2012US018514

PATIENT
  Age: 60 Year
  Sex: Female

DRUGS (3)
  1. CEFOXITIN [Suspect]
     Dosage: 2 G, ONCE/SINGLE
     Route: 042
  2. CEFOXITIN [Suspect]
     Dosage: 1 G, BID
     Route: 042
  3. CIPROFLOXACIN [Suspect]
     Dosage: 400 MG, QD
     Route: 042

REACTIONS (19)
  - FEAR [None]
  - CATATONIA [None]
  - RETCHING [None]
  - NEUROTOXICITY [None]
  - TREMOR [None]
  - NEGATIVISM [None]
  - ABNORMAL BEHAVIOUR [None]
  - MUSCLE RIGIDITY [None]
  - SUSPICIOUSNESS [None]
  - SCREAMING [None]
  - SPEECH DISORDER [None]
  - LOCKED-IN SYNDROME [None]
  - MYOCLONUS [None]
  - PARANOIA [None]
  - TACHYCARDIA [None]
  - DELIRIUM [None]
  - ANXIETY [None]
  - AGITATION [None]
  - ELECTROCARDIOGRAM ABNORMAL [None]
